FAERS Safety Report 13252498 (Version 1)
Quarter: 2017Q1

REPORT INFORMATION
  Report Type: Spontaneous
  Country: US (occurrence: US)
  Receive Date: 20170220
  Receipt Date: 20170220
  Transmission Date: 20170428
  Serious: No
  Sender: FDA-Public Use
  Company Number: US-COLLEGIUM PHARMACEUTICAL, INC.-2016CGM00038

PATIENT
  Sex: Male
  Weight: 68.27 kg

DRUGS (2)
  1. UNSPECIFIED OXYCODONE PRODUCTS [Concomitant]
     Dosage: UNK
     Dates: start: 201609
  2. XTAMPZA ER [Suspect]
     Active Substance: OXYCODONE
     Indication: PAIN
     Dosage: 27 MG, EVERY 12 HOURS
     Route: 048
     Dates: start: 20161024, end: 201611

REACTIONS (1)
  - Gluten sensitivity [Recovering/Resolving]

NARRATIVE: CASE EVENT DATE: 2016
